FAERS Safety Report 7456995-5 (Version None)
Quarter: 2011Q2

REPORT INFORMATION
  Report Type: 
  Country: None (occurrence: None)
  Receive Date: 20110504
  Receipt Date: 20110426
  Transmission Date: 20111010
  Serious: Yes (Hospitalization)
  Sender: FDA-Public Use
  Company Number: NL-MEDIMMUNE-MEDI-0013146

PATIENT
  Sex: Male
  Weight: 9 kg

DRUGS (2)
  1. SYNAGIS [Suspect]
     Route: 030
     Dates: start: 20100920, end: 20110328
  2. SYNAGIS [Suspect]
     Route: 030
     Dates: start: 20110426, end: 20110426

REACTIONS (4)
  - RESPIRATORY TRACT INFECTION VIRAL [None]
  - ROTAVIRUS INFECTION [None]
  - PYREXIA [None]
  - NASAL CONGESTION [None]
